FAERS Safety Report 22823482 (Version 3)
Quarter: 2024Q4

REPORT INFORMATION
  Report Type: Report from Study
  Country: CA (occurrence: CA)
  Receive Date: 20230815
  Receipt Date: 20241217
  Transmission Date: 20250115
  Serious: Yes (Other)
  Sender: BIOCON
  Company Number: CA-MYLANLABS-2021M1067466

PATIENT

DRUGS (4)
  1. HULIO [Suspect]
     Active Substance: ADALIMUMAB-FKJP
     Indication: Crohn^s disease
     Dosage: 160 MILLIGRAM
     Route: 065
     Dates: start: 20210923
  2. HULIO [Suspect]
     Active Substance: ADALIMUMAB-FKJP
     Dosage: 80 MILLIGRAM, QW, (WEEKLY)
     Route: 058
     Dates: start: 20210923
  3. HULIO [Suspect]
     Active Substance: ADALIMUMAB-FKJP
     Dosage: UNK, QW
     Route: 058
     Dates: start: 20210923
  4. HULIO [Suspect]
     Active Substance: ADALIMUMAB-FKJP
     Dosage: 80 MILLIGRAM, QW, (WEEKLY)
     Route: 058

REACTIONS (7)
  - Crohn^s disease [Unknown]
  - Malaise [Unknown]
  - Muscle spasms [Unknown]
  - Faecal calprotectin increased [Unknown]
  - Injection site pain [Unknown]
  - Incorrect dose administered [Unknown]
  - Off label use [Unknown]

NARRATIVE: CASE EVENT DATE: 20210923
